FAERS Safety Report 10789415 (Version 1)
Quarter: 2015Q1

REPORT INFORMATION
  Report Type: Spontaneous
  Country: US (occurrence: US)
  Receive Date: 20150212
  Receipt Date: 20150212
  Transmission Date: 20150721
  Serious: No
  Sender: FDA-Public Use
  Company Number: US-GLAXOSMITHKLINE-A1083010A

PATIENT

DRUGS (8)
  1. ATENOLOL. [Concomitant]
     Active Substance: ATENOLOL
  2. BABY ASPIRIN [Concomitant]
     Active Substance: ASPIRIN
  3. FLOVENT [Suspect]
     Active Substance: FLUTICASONE PROPIONATE
     Indication: STOMATITIS
     Dosage: INH 44MCG
     Route: 061
     Dates: start: 20140520, end: 20140728
  4. METFORMIN [Concomitant]
     Active Substance: METFORMIN HYDROCHLORIDE
  5. GABAPENTIN. [Concomitant]
     Active Substance: GABAPENTIN
  6. CALCIUM + VITAMIN D3 [Concomitant]
  7. MVI [Concomitant]
     Active Substance: VITAMINS
  8. NABUMETONE. [Concomitant]
     Active Substance: NABUMETONE

REACTIONS (3)
  - Drug administration error [Recovered/Resolved]
  - Medication error [Recovered/Resolved]
  - Oral fungal infection [Recovered/Resolved]

NARRATIVE: CASE EVENT DATE: 201406
